FAERS Safety Report 24248685 (Version 1)
Quarter: 2024Q3

REPORT INFORMATION
  Report Type: Spontaneous
  Country: US (occurrence: None)
  Receive Date: 20240823
  Receipt Date: 20240823
  Transmission Date: 20241016
  Serious: No
  Sender: Public
  Company Number: None

PATIENT
  Age: 66 Year
  Sex: Male

DRUGS (1)
  1. CABENUVA [Suspect]
     Active Substance: CABOTEGRAVIR\RILPIVIRINE
     Indication: HIV infection
     Dosage: OTHER QUANTITY : 600-900MG;?OTHER FREQUENCY : EVERY 56 DAYS;?
     Dates: start: 20220808

REACTIONS (1)
  - Flushing [None]

NARRATIVE: CASE EVENT DATE: 20240501
